FAERS Safety Report 10373639 (Version 2)
Quarter: 2014Q4

REPORT INFORMATION
  Report Type: Spontaneous
  Country: US (occurrence: US)
  Receive Date: 20140809
  Receipt Date: 20141009
  Transmission Date: 20150528
  Serious: No
  Sender: FDA-Public Use
  Company Number: US-009507513-1408USA002257

PATIENT
  Age: 35 Year
  Sex: Female

DRUGS (1)
  1. RAGWITEK [Suspect]
     Active Substance: AMBROSIA ARTEMISIIFOLIA POLLEN
     Indication: SEASONAL ALLERGY
     Dosage: 1 TABLET PER DAY
     Route: 060

REACTIONS (3)
  - Abdominal rigidity [Recovered/Resolved]
  - Ear pruritus [Recovered/Resolved]
  - Therapy cessation [Unknown]
